FAERS Safety Report 4914631-3 (Version None)
Quarter: 2006Q1

REPORT INFORMATION
  Report Type: 
  Country: None (occurrence: None)
  Receive Date: 20060216
  Receipt Date: 20051019
  Transmission Date: 20060701
  Serious: Yes (Hospitalization)
  Sender: FDA-Public Use
  Company Number: US-MERCK-0510USA08308

PATIENT
  Age: 64 Year
  Sex: Female

DRUGS (5)
  1. VIOXX [Suspect]
     Indication: PAIN IN EXTREMITY
     Route: 048
     Dates: start: 19990901, end: 20040901
  2. LOZOL [Concomitant]
     Route: 065
  3. PREVACID [Concomitant]
     Route: 065
  4. ENTEX (OLD FORMULA) [Concomitant]
     Route: 065
  5. SYNTHROID [Concomitant]
     Route: 065

REACTIONS (7)
  - ACUTE MYOCARDIAL INFARCTION [None]
  - BACK PAIN [None]
  - CORONARY ARTERY DISEASE [None]
  - DYSLIPIDAEMIA [None]
  - LIVER FUNCTION TEST ABNORMAL [None]
  - SKIN EXFOLIATION [None]
  - SLEEP DISORDER [None]
